FAERS Safety Report 16700788 (Version 1)
Quarter: 2019Q3

REPORT INFORMATION
  Report Type: Spontaneous
  Country: CA (occurrence: CA)
  Receive Date: 20190814
  Receipt Date: 20190814
  Transmission Date: 20191004
  Serious: Yes (Other)
  Sender: FDA-Public Use
  Company Number: CA-TEVA-2019-CA-1091780

PATIENT
  Age: 67 Year
  Sex: Female

DRUGS (1)
  1. DESMOPRESSIN [Suspect]
     Active Substance: DESMOPRESSIN
     Indication: NOCTURIA
     Route: 065

REACTIONS (3)
  - Urinary retention [Recovered/Resolved]
  - Abdominal pain [Recovered/Resolved]
  - Hyponatraemia [Recovered/Resolved]
